FAERS Safety Report 5754736-0 (Version None)
Quarter: 2008Q2

REPORT INFORMATION
  Report Type: 
  Country: None (occurrence: None)
  Receive Date: 20080530
  Receipt Date: 20080522
  Transmission Date: 20081010
  Serious: Yes (Hospitalization)
  Sender: FDA-Public Use
  Company Number: US-PFIZER INC-2008044446

PATIENT
  Sex: Male

DRUGS (10)
  1. LIPITOR [Suspect]
  2. LOPID [Suspect]
  3. PREDNISONE TAB [Suspect]
     Indication: COLITIS
  4. INVESTIGATIONAL DRUG [Suspect]
     Indication: MALIGNANT MELANOMA
     Route: 042
     Dates: start: 20080312, end: 20080402
  5. ATENOLOL [Concomitant]
  6. ZETIA [Concomitant]
  7. ASPIRIN [Concomitant]
  8. VITAMIN CAP [Concomitant]
  9. BACTRIM [Concomitant]
  10. OMEPRAZOLE [Concomitant]

REACTIONS (3)
  - BACK PAIN [None]
  - DYSPNOEA [None]
  - MUSCULAR WEAKNESS [None]
